FAERS Safety Report 22108423 (Version 2)
Quarter: 2023Q1

REPORT INFORMATION
  Report Type: Spontaneous
  Country: US (occurrence: US)
  Receive Date: 20230317
  Receipt Date: 20230321
  Transmission Date: 20230417
  Serious: No
  Sender: FDA-Public Use
  Company Number: US-GLAXOSMITHKLINE-USCH2023010706

PATIENT
  Sex: Male

DRUGS (2)
  1. VOLTAREN [Suspect]
     Active Substance: DICLOFENAC SODIUM
     Indication: Bursitis
     Dosage: UNK
     Route: 065
     Dates: start: 20230223
  2. VOLTAREN [Suspect]
     Active Substance: DICLOFENAC SODIUM
     Indication: Swelling
     Dosage: UNK
     Route: 065

REACTIONS (2)
  - Application site swelling [Unknown]
  - Off label use [Unknown]

NARRATIVE: CASE EVENT DATE: 20230223
